FAERS Safety Report 17763733 (Version 1)
Quarter: 2020Q3

REPORT INFORMATION
  Report Type: Spontaneous
  Country: FR (occurrence: FR)
  Receive Date: 20200510
  Receipt Date: 20200510
  Transmission Date: 20201105
  Serious: Yes (Other)
  Sender: FDA-Public Use
  Company Number: FR-CADILA HEALTHCARE LIMITED-FR-ZYDUS-026033

PATIENT

DRUGS (46)
  1. RAMIPRIL. [Suspect]
     Active Substance: RAMIPRIL
     Indication: HYPERTENSION
     Dosage: 2.5 MILLIGRAM,(INTERVAL :1 DAYS)
     Route: 064
     Dates: start: 20160930, end: 20170224
  2. AMOXICILLIN. [Suspect]
     Active Substance: AMOXICILLIN
     Indication: PRODUCT USED FOR UNKNOWN INDICATION
     Dosage: 3 GRAM,3 G, QD,(INTERVAL :1 DAYS)
     Route: 064
     Dates: start: 20170804, end: 20170914
  3. METFORMIN [Suspect]
     Active Substance: METFORMIN HYDROCHLORIDE
     Indication: TYPE 2 DIABETES MELLITUS
     Dosage: 850 MILLIGRAM,850 MG, QD,(INTERVAL :1 DAYS)
     Route: 064
     Dates: end: 20170224
  4. FUROSEMIDE. [Suspect]
     Active Substance: FUROSEMIDE
     Indication: HYPERTENSION
     Dosage: 40 MILLIGRAM
     Route: 064
     Dates: start: 20170516
  5. FUROSEMIDE. [Suspect]
     Active Substance: FUROSEMIDE
     Indication: HYPERTENSION
     Dosage: 50 MILLIGRAM,50 MG, UNK
     Route: 064
     Dates: start: 201705
  6. FERROUS SULFATE. [Suspect]
     Active Substance: FERROUS SULFATE
     Indication: NORMOCHROMIC NORMOCYTIC ANAEMIA
     Dosage: 1 DOSAGE FORM,1 DF, 1X/DAY,(INTERVAL :1 DAYS)
     Route: 064
     Dates: start: 20170313, end: 20170914
  7. LABETALOL HYDROCHLORIDE. [Suspect]
     Active Substance: LABETALOL HYDROCHLORIDE
     Indication: HYPERTENSION
     Dosage: 80 MILLIGRAM,80 MG, QD,(INTERVAL :1 DAYS)
     Route: 064
     Dates: start: 20170516, end: 20170914
  8. LARGACTIL [Suspect]
     Active Substance: CHLORPROMAZINE
     Indication: BIPOLAR I DISORDER
     Dosage: .5 DOSAGE FORM,5 DF, UNK
     Route: 064
  9. LARGACTIL [Suspect]
     Active Substance: CHLORPROMAZINE
     Indication: BIPOLAR I DISORDER
     Dosage: 25 DOSAGE FORM,25 MG
     Route: 064
     Dates: end: 20170720
  10. FUROSEMIDE. [Suspect]
     Active Substance: FUROSEMIDE
     Indication: HYPERTENSION
     Dosage: 40 MILLIGRAM,50 MG, UNK
     Route: 064
     Dates: start: 20170516
  11. FOLIC ACID. [Suspect]
     Active Substance: FOLIC ACID
     Indication: NORMOCHROMIC NORMOCYTIC ANAEMIA
     Dosage: 5 MILLIGRAM,5 MG, QD,(INTERVAL :1 DAYS)
     Route: 064
     Dates: start: 20170224, end: 20170914
  12. FOLIC ACID. [Suspect]
     Active Substance: FOLIC ACID
     Indication: NORMOCHROMIC NORMOCYTIC ANAEMIA
     Dosage: 5 MILLIGRAM,5 MG, QD,(INTERVAL :1 DAYS)
     Route: 064
     Dates: start: 20170224
  13. METHYLDOPA. [Suspect]
     Active Substance: METHYLDOPA
     Indication: HYPERTENSION
     Dosage: 1500 MILLIGRAM,1500 MG, QD,(INTERVAL :1 DAYS)
     Route: 064
     Dates: end: 201607
  14. PROPRANOLOL HYDROCHLORIDE. [Suspect]
     Active Substance: PROPRANOLOL HYDROCHLORIDE
     Indication: HYPERTENSION
     Dosage: 80 MILLIGRAM,80 MG,(INTERVAL :1 DAYS)
     Route: 064
     Dates: start: 20170716
  15. INSULINE [Suspect]
     Active Substance: INSULIN NOS
     Indication: TYPE 2 DIABETES MELLITUS
     Dosage: UNK UNK, UNK
     Route: 064
     Dates: start: 20160930, end: 20170224
  16. CHLORPROMAZINE HYDROCHLORIDE. [Suspect]
     Active Substance: CHLORPROMAZINE HYDROCHLORIDE
     Indication: PRODUCT USED FOR UNKNOWN INDICATION
     Dosage: 25 MILLIGRAM/KILOGRAM,25 MG, QD,(INTERVAL :1 DAYS)
     Route: 064
     Dates: start: 20170720
  17. NICARDIPINE HYDROCHLORIDE. [Suspect]
     Active Substance: NICARDIPINE HYDROCHLORIDE
     Indication: HYPERTENSION
     Dosage: 50 MILLIGRAM,50MG FORM LP X2/DAY
     Route: 064
     Dates: start: 20170405, end: 20170914
  18. ARIPIPRAZOLE. [Suspect]
     Active Substance: ARIPIPRAZOLE
     Indication: BIPOLAR I DISORDER
     Dosage: 10 MILLIGRAM,10 MG, QD,(INTERVAL :1 DAYS)
     Route: 064
     Dates: start: 20160930, end: 20170224
  19. METFORMIN [Suspect]
     Active Substance: METFORMIN HYDROCHLORIDE
     Indication: TYPE 2 DIABETES MELLITUS
     Dosage: 1700 MILLIGRAM,1700 MG, QD,(INTERVAL :1 DAYS)
     Route: 064
     Dates: end: 20170804
  20. POTASSIUM CHLORIDE. [Suspect]
     Active Substance: POTASSIUM CHLORIDE
     Indication: PRODUCT USED FOR UNKNOWN INDICATION
     Dosage: UNK
     Route: 064
  21. LEVEMIR [Suspect]
     Active Substance: INSULIN DETEMIR
     Indication: TYPE 2 DIABETES MELLITUS
     Dosage: 10 INTERNATIONAL UNIT,10 IU, QD,(INTERVAL :1 DAYS)
     Route: 064
     Dates: start: 20160930, end: 20170224
  22. AMITRIPTYLINE HYDROCHLORIDE. [Suspect]
     Active Substance: AMITRIPTYLINE HYDROCHLORIDE
     Indication: DIABETIC NEUROPATHY
     Dosage: 2 DOSAGE FORM,2 DF, QD,(INTERVAL :1 DAYS)
     Route: 064
     Dates: start: 20160930, end: 20170914
  23. GABAPENTIN. [Suspect]
     Active Substance: GABAPENTIN
     Indication: DIABETIC NEUROPATHY
     Dosage: 400 MILLIGRAM,(INTERVAL :1 DAYS)
     Route: 064
     Dates: start: 20160930
  24. GLICLAZIDE [Suspect]
     Active Substance: GLICLAZIDE
     Indication: TYPE 2 DIABETES MELLITUS
     Dosage: 120 MILLIGRAM,(INTERVAL :1 DAYS)
     Route: 064
     Dates: start: 20160930, end: 20170224
  25. CALCIUM FOLINATE [Suspect]
     Active Substance: LEUCOVORIN CALCIUM
     Indication: NORMOCHROMIC NORMOCYTIC ANAEMIA
     Dosage: 5 MILLIGRAM,5 MG, DAILY,(INTERVAL :1 DAYS)
     Route: 064
     Dates: start: 20170224, end: 20170313
  26. PROPRANOLOL HYDROCHLORIDE. [Suspect]
     Active Substance: PROPRANOLOL HYDROCHLORIDE
     Indication: HYPERTENSION
     Dosage: 25 MILLIGRAM,25 MG, 1X/DAY,(INTERVAL :1 DAYS)
     Route: 064
     Dates: start: 20170720
  27. DIFFU K [Suspect]
     Active Substance: POTASSIUM CHLORIDE
     Indication: HYPOKALAEMIA
     Dosage: 3600 MILLIGRAM,3600 MG, QD? 1200 MG, QD (2 TO 3 TIMES PER DAY),(INTERVAL :1 DAYS)
     Route: 064
     Dates: start: 20170804
  28. FOLINIC ACID [Suspect]
     Active Substance: LEUCOVORIN
     Indication: NORMOCHROMIC NORMOCYTIC ANAEMIA
     Dosage: 5 MILLIGRAM,5 MG, QD,(INTERVAL :1 DAYS)
     Route: 064
     Dates: start: 20170224, end: 20170914
  29. LOXOPROFEN SODIUM [Suspect]
     Active Substance: LOXOPROFEN SODIUM
     Indication: HYPERTENSION
     Dosage: UNK, UNK
     Route: 064
     Dates: start: 20170516
  30. METFORMIN [Suspect]
     Active Substance: METFORMIN HYDROCHLORIDE
     Indication: TYPE 2 DIABETES MELLITUS
     Dosage: 1700 MILLIGRAM,1700 MG, QD,(INTERVAL :1 DAYS)
     Route: 064
     Dates: start: 20160930, end: 20170224
  31. INSULINE [Suspect]
     Active Substance: INSULIN NOS
     Indication: TYPE 2 DIABETES MELLITUS
     Dosage: UNK
     Route: 064
     Dates: start: 20160930, end: 20170224
  32. FORLAX [Suspect]
     Active Substance: POLYETHYLENE GLYCOL 4000
     Indication: CONSTIPATION
     Dosage: 1200 MILLIGRAM,120 MG, DAILY,(INTERVAL :1 DAYS)
     Route: 064
     Dates: start: 20160930, end: 20170405
  33. FORLAX [Suspect]
     Active Substance: POLYETHYLENE GLYCOL 4000
     Indication: CONSTIPATION
     Dosage: 120 MILLIGRAM,120 MG, DAILY,(INTERVAL :1 DAYS)
     Route: 064
     Dates: start: 20160930, end: 20170224
  34. NICARDIPINE HYDROCHLORIDE. [Suspect]
     Active Substance: NICARDIPINE HYDROCHLORIDE
     Indication: HYPERTENSION
     Dosage: 50 MILLIGRAM,50 MG, UNK
     Route: 064
     Dates: start: 20170313
  35. NICOTINE. [Suspect]
     Active Substance: NICOTINE
     Indication: EX-TOBACCO USER
     Dosage: 7 MILLIGRAM,7 MG, QD,(INTERVAL :1 DAYS)
     Route: 064
     Dates: start: 20170224, end: 20170914
  36. INSULIN LISPRO [Suspect]
     Active Substance: INSULIN LISPRO
     Indication: TYPE 2 DIABETES MELLITUS
     Dosage: 21 MICROGRAM/SQ. METER,21 UG/M2, QD,(INTERVAL :1 DAYS)
     Route: 064
     Dates: start: 20170224, end: 20170224
  37. METFORMIN [Suspect]
     Active Substance: METFORMIN HYDROCHLORIDE
     Indication: TYPE 2 DIABETES MELLITUS
     Dosage: 850 MILLIGRAM,(INTERVAL :1 DAYS)
     Route: 064
     Dates: start: 20160930, end: 20170224
  38. TRAMADOL. [Suspect]
     Active Substance: TRAMADOL
     Indication: DIABETIC NEUROPATHY
     Dosage: 100 MILLIGRAM,(INTERVAL :1 DAYS)
     Route: 064
     Dates: start: 20160930, end: 20170306
  39. TRAMADOL. [Suspect]
     Active Substance: TRAMADOL
     Indication: DIABETIC NEUROPATHY
     Dosage: 50 MILLIGRAM,100 MG, 1X/DAY,(INTERVAL :1 DAYS)
     Route: 064
     Dates: start: 20160930, end: 20170306
  40. GABAPENTIN. [Suspect]
     Active Substance: GABAPENTIN
     Indication: DIABETIC NEUROPATHY
     Dosage: 800 MILLIGRAM,(INTERVAL :1 DAYS)
     Route: 064
     Dates: start: 20160930
  41. AMOXICILLIN. [Suspect]
     Active Substance: AMOXICILLIN
     Indication: PRODUCT USED FOR UNKNOWN INDICATION
     Dosage: 3 GRAM,(INTERVAL :1 DAYS)
     Route: 064
     Dates: start: 20170804, end: 20170914
  42. TARDYFERON [Suspect]
     Active Substance: FERROUS SULFATE
     Indication: NORMOCHROMIC NORMOCYTIC ANAEMIA
     Dosage: 1 DOSAGE FORM,1 DF, QD,(INTERVAL :1 DAYS)
     Route: 064
     Dates: start: 20170313, end: 20170914
  43. LANTUS [Suspect]
     Active Substance: INSULIN GLARGINE
     Indication: TYPE 2 DIABETES MELLITUS
     Dosage: 20 INTERNATIONAL UNIT,20 IU, QD,(INTERVAL :1 DAYS)
     Route: 064
     Dates: start: 20170224, end: 20170914
  44. INSULIN [Suspect]
     Active Substance: INSULIN NOS
     Indication: PRODUCT USED FOR UNKNOWN INDICATION
     Dosage: UNK
     Route: 064
     Dates: start: 20161230, end: 20170224
  45. FORLAX [Suspect]
     Active Substance: POLYETHYLENE GLYCOL 4000
     Indication: CONSTIPATION
     Dosage: 1200 MILLIGRAM,120 MG, DAILY,(INTERVAL :1 DAYS)
     Route: 064
     Dates: start: 20160930, end: 20170224
  46. INSULIN LISPRO [Suspect]
     Active Substance: INSULIN LISPRO
     Indication: TYPE 2 DIABETES MELLITUS
     Dosage: 21 MICROGRAM/SQ. METER,21 UG/M2, QD,(INTERVAL :1 DAYS)
     Route: 064
     Dates: start: 20170224

REACTIONS (5)
  - Foetal disorder [Unknown]
  - Neutropenia neonatal [Not Recovered/Not Resolved]
  - Premature baby [Recovered/Resolved]
  - Foetal exposure during pregnancy [Recovered/Resolved]
  - Low birth weight baby [Unknown]

NARRATIVE: CASE EVENT DATE: 20170914
